FAERS Safety Report 21822990 (Version 1)
Quarter: 2023Q1

REPORT INFORMATION
  Report Type: Spontaneous
  Country: US (occurrence: US)
  Receive Date: 20230105
  Receipt Date: 20230105
  Transmission Date: 20230418
  Serious: Yes (Other)
  Sender: FDA-Public Use
  Company Number: US-AMNEAL PHARMACEUTICALS-2022-AMRX-01045

PATIENT
  Age: 39 Year
  Sex: Female

DRUGS (8)
  1. ACTIVELLA [Suspect]
     Active Substance: ESTRADIOL\NORETHINDRONE ACETATE
     Indication: Uterine leiomyoma
     Dosage: ELAGOLIX 300 MG BID + ESTRADIOL, NORETHINDRONE ACETATE 1.0 MG/0.5 MG
     Route: 048
     Dates: start: 20190617, end: 20200518
  2. ACTIVELLA [Suspect]
     Active Substance: ESTRADIOL\NORETHINDRONE ACETATE
     Dosage: ELAGOLIX 300 MG BID + ESTRADIOL, NORETHINDRONE ACETATE 1.0 MG/0.5 MG (1 IN 1 D)
     Route: 048
     Dates: start: 20200811, end: 20220125
  3. ELAGOLIX [Suspect]
     Active Substance: ELAGOLIX
     Indication: Uterine leiomyoma
     Dosage: ELAGOLIX 300 MG BID + ESTRADIOL, NORETHINDRONE ACETATE 1.0 MG/0.5 MG
     Route: 048
     Dates: start: 20190617, end: 20200518
  4. ELAGOLIX [Suspect]
     Active Substance: ELAGOLIX
     Dosage: ELAGOLIX 300 MG BID + ESTRADIOL, NORETHINDRONE ACETATE 1.0 MG/0.5 MG (1 IN 1 D)
     Route: 048
     Dates: start: 20200811, end: 20220125
  5. SIMVASTATIN [Concomitant]
     Active Substance: SIMVASTATIN
     Indication: Hypercholesterolaemia
     Dosage: 25 MILLIGRAM, 1 /DAY
     Route: 048
     Dates: start: 201206
  6. HYDROCHLOROTHIAZIDE [Concomitant]
     Active Substance: HYDROCHLOROTHIAZIDE
     Indication: Hypertension
     Dosage: 25 MILLIGRAM, 1 /DAY
     Route: 048
     Dates: start: 201206
  7. LORATADINE [Concomitant]
     Active Substance: LORATADINE
     Indication: Seasonal allergy
     Dosage: 10 MILLIGRAM, 1 /DAY
     Route: 048
     Dates: start: 201206
  8. VITAMIN D3 [Concomitant]
     Active Substance: CHOLECALCIFEROL
     Indication: Vitamin D deficiency
     Dosage: 10000 IU INTERNATIONAL UNIT(S), 1 /DAY
     Route: 048
     Dates: start: 20190117

REACTIONS (1)
  - Maternal exposure during pregnancy [Unknown]
